FAERS Safety Report 13790190 (Version 1)
Quarter: 2017Q3

REPORT INFORMATION
  Report Type: Spontaneous
  Country: GB (occurrence: GB)
  Receive Date: 20170725
  Receipt Date: 20170725
  Transmission Date: 20171127
  Serious: Yes (Life-Threatening, Other)
  Sender: FDA-Public Use
  Company Number: GB-PFIZER INC-2017319188

PATIENT
  Age: 32 Year
  Sex: Female

DRUGS (3)
  1. ATRACURIUM BESILATE [Suspect]
     Active Substance: ATRACURIUM BESYLATE
     Indication: GENERAL ANAESTHESIA
     Dosage: 20 MG, UNK
     Route: 042
     Dates: start: 20161022, end: 20161022
  2. SUXAMETHONIUM [Suspect]
     Active Substance: SUCCINYLCHOLINE
     Indication: GENERAL ANAESTHESIA
     Dosage: 100 MG, UNK
     Route: 042
     Dates: start: 20161022, end: 20161022
  3. OXYTOCIN. [Suspect]
     Active Substance: OXYTOCIN
     Indication: UTERINE CONTRACTIONS ABNORMAL
     Dosage: 5 IU, UNK
     Route: 042
     Dates: start: 20161022, end: 20161022

REACTIONS (4)
  - Hypotension [Unknown]
  - Anaphylactic reaction [Recovered/Resolved with Sequelae]
  - Flushing [Unknown]
  - Cyanosis [Unknown]

NARRATIVE: CASE EVENT DATE: 20161022
